FAERS Safety Report 5856588-7 (Version None)
Quarter: 2008Q3

REPORT INFORMATION
  Report Type: 
  Country: None (occurrence: None)
  Receive Date: 20080825
  Receipt Date: 20080814
  Transmission Date: 20090109
  Serious: Yes (Life-Threatening, Hospitalization)
  Sender: FDA-Public Use
  Company Number: GB-MERCK-0808GBR00041

PATIENT
  Age: 69 Year
  Sex: Male

DRUGS (5)
  1. ZOCOR [Suspect]
     Indication: ISCHAEMIC HEART DISEASE PROPHYLAXIS
     Route: 048
     Dates: start: 20080417, end: 20080719
  2. BENDROFLUMETHIAZIDE [Concomitant]
     Indication: HYPERTENSION
     Route: 048
  3. CLOPIDOGREL BISULFATE [Concomitant]
     Indication: ISCHAEMIC HEART DISEASE PROPHYLAXIS
     Route: 048
     Dates: start: 20080401
  4. ERYTHROMYCIN [Concomitant]
     Route: 048
     Dates: end: 20080717
  5. FELODIPINE [Concomitant]
     Route: 048

REACTIONS (3)
  - MYOSITIS [None]
  - RENAL FAILURE ACUTE [None]
  - RHABDOMYOLYSIS [None]
